FAERS Safety Report 6361619-4 (Version None)
Quarter: 2009Q3

REPORT INFORMATION
  Report Type: 
  Country: None (occurrence: None)
  Receive Date: 20090918
  Receipt Date: 20090915
  Transmission Date: 20100115
  Serious: Yes (Hospitalization)
  Sender: FDA-Public Use
  Company Number: PHEH2009US10935

PATIENT
  Sex: Male

DRUGS (2)
  1. EXJADE [Suspect]
     Indication: MYELODYSPLASTIC SYNDROME
     Dosage: 1375 MG DAILY
     Route: 048
     Dates: start: 20090909, end: 20090912
  2. EXJADE [Suspect]
     Indication: IRON OVERLOAD

REACTIONS (2)
  - DIARRHOEA [None]
  - HYPOTENSION [None]
